FAERS Safety Report 4844555-1 (Version None)
Quarter: 2005Q4

REPORT INFORMATION
  Report Type: 
  Country: None (occurrence: None)
  Receive Date: 20051130
  Receipt Date: 20051130
  Transmission Date: 20060501
  Serious: Yes (Hospitalization)
  Sender: FDA-Public Use
  Company Number: None

PATIENT
  Age: 60 Year
  Sex: Female
  Weight: 48.0813 kg

DRUGS (1)
  1. OXANDROLONE [Suspect]
     Indication: WEIGHT DECREASED
     Dosage: 10 MG BID , ORAL
     Route: 048
     Dates: start: 20051111

REACTIONS (6)
  - ANAEMIA [None]
  - DEHYDRATION [None]
  - DIABETES MELLITUS [None]
  - LUNG INFECTION [None]
  - PNEUMONIA [None]
  - TACHYCARDIA [None]
